FAERS Safety Report 17142033 (Version 3)
Quarter: 2020Q1

REPORT INFORMATION
  Report Type: Spontaneous
  Country: US (occurrence: US)
  Receive Date: 20191211
  Receipt Date: 20200323
  Transmission Date: 20200409
  Serious: Yes (Other)
  Sender: FDA-Public Use
  Company Number: US-JNJFOC-20191145738

PATIENT
  Sex: Male
  Weight: 106.69 kg

DRUGS (3)
  1. GLIMEPIRIDE. [Concomitant]
     Active Substance: GLIMEPIRIDE
     Indication: DIABETES MELLITUS
  2. METFORMIN [Concomitant]
     Active Substance: METFORMIN HYDROCHLORIDE
     Indication: DIABETES MELLITUS
  3. ERLEADA [Suspect]
     Active Substance: APALUTAMIDE
     Indication: PROSTATE CANCER
     Dosage: 4 TABLETS (60MG) ONCE DAILY AT NIGHT.
     Route: 048
     Dates: start: 2019, end: 2019

REACTIONS (2)
  - Prostate cancer metastatic [Unknown]
  - Somnolence [Unknown]

NARRATIVE: CASE EVENT DATE: 2019
